FAERS Safety Report 7642637-2 (Version None)
Quarter: 2011Q3

REPORT INFORMATION
  Report Type: 
  Country: None (occurrence: None)
  Receive Date: 20110722
  Receipt Date: 20110713
  Transmission Date: 20111222
  Serious: Yes (Hospitalization, Other)
  Sender: FDA-Public Use
  Company Number: 2010SP043244

PATIENT
  Age: 22 Year
  Sex: Female
  Weight: 65.7716 kg

DRUGS (5)
  1. NUVARING [Suspect]
  2. NUVARING [Suspect]
  3. NUVARING [Suspect]
     Indication: CONTRACEPTION
     Dates: start: 20040501, end: 20080801
  4. COUMADIN [Suspect]
     Indication: ANTICOAGULANT THERAPY
  5. NUVARING [Suspect]

REACTIONS (1)
  - PULMONARY EMBOLISM [None]
